FAERS Safety Report 8065902-6 (Version None)
Quarter: 2012Q1

REPORT INFORMATION
  Report Type: 
  Country: None (occurrence: None)
  Receive Date: 20120124
  Receipt Date: 20120120
  Transmission Date: 20120608
  Serious: Yes (Life-Threatening, Hospitalization)
  Sender: FDA-Public Use
  Company Number: DE-SANOFI-AVENTIS-2011SA022605

PATIENT
  Age: 53 Year
  Sex: Male
  Weight: 130 kg

DRUGS (15)
  1. DIGITOXIN TAB [Concomitant]
     Route: 048
  2. METOPROLOL SUCCINATE [Concomitant]
     Dosage: 2/3 AND 1/3 OF DOSAGE FORM DAILY
     Route: 048
  3. KALINOR [Concomitant]
     Route: 065
  4. PREDNISOLONE [Concomitant]
     Dosage: 1/4-0-0-0 DAILY
     Route: 065
  5. MULTAQ [Suspect]
     Indication: ATRIAL FIBRILLATION
     Route: 048
     Dates: start: 20100924, end: 20101207
  6. TORSEMIDE [Concomitant]
     Dosage: 2-1-0
     Route: 048
  7. SIMVASTATIN [Concomitant]
     Dosage: 0-0-1/2-0 DAILY
     Route: 065
  8. COLECALCIFEROL [Concomitant]
     Route: 065
  9. CALCIUM [Concomitant]
     Route: 048
  10. MAGNESIUM ASPARTATE HYDROCHLORIDE [Concomitant]
     Route: 065
  11. RAMIPRIL [Concomitant]
     Dosage: A HALF DOSAGE FORM TWICE DAILY
     Route: 048
  12. HYDROMORPHONE HCL [Concomitant]
     Dosage: 0-0-1.5-0 DAILY
     Route: 065
  13. OMEPRAZOLE [Concomitant]
     Route: 065
  14. PROMETHAZINE [Concomitant]
     Route: 065
  15. SPIRONOLACTONE [Concomitant]
     Dosage: 1/2-0-0-0 DAILY
     Route: 065

REACTIONS (2)
  - TORSADE DE POINTES [None]
  - UNDERDOSE [None]
